FAERS Safety Report 6992724-7 (Version None)
Quarter: 2010Q3

REPORT INFORMATION
  Report Type: 
  Country: None (occurrence: None)
  Receive Date: 20100917
  Receipt Date: 20100908
  Transmission Date: 20110219
  Serious: Yes (Hospitalization)
  Sender: FDA-Public Use
  Company Number: A0744818A

PATIENT
  Age: 78 Year
  Sex: Male
  Weight: 95.5 kg

DRUGS (1)
  1. AVANDIA [Suspect]
     Dosage: 8MG PER DAY
     Route: 048
     Dates: start: 20030101, end: 20070101

REACTIONS (7)
  - ATRIAL FLUTTER [None]
  - CEREBROVASCULAR DISORDER [None]
  - LOSS OF CONSCIOUSNESS [None]
  - MACULAR ISCHAEMIA [None]
  - MYOCARDIAL INFARCTION [None]
  - UPPER LIMB FRACTURE [None]
  - VERTIGO [None]
